FAERS Safety Report 8013005-9 (Version None)
Quarter: 2011Q4

REPORT INFORMATION
  Report Type: 
  Country: None (occurrence: None)
  Receive Date: 20111229
  Receipt Date: 20111219
  Transmission Date: 20120403
  Serious: Yes (Death)
  Sender: FDA-Public Use
  Company Number: US-PFIZER INC-2011309944

PATIENT
  Age: 52 Year
  Sex: Female

DRUGS (10)
  1. OLANZAPINE [Suspect]
  2. OXCARBAZEPINE [Suspect]
  3. FLUOXETINE [Suspect]
  4. TRAZODONE HCL [Suspect]
  5. SERTRALINE HYDROCHLORIDE [Suspect]
  6. ZOLPIDEM [Suspect]
  7. LORAZEPAM [Suspect]
  8. MORPHINE SULFATE [Suspect]
  9. CLONAZEPAM [Suspect]
  10. TEMAZEPAM [Suspect]

REACTIONS (4)
  - CARDIAC ARREST [None]
  - TOXICITY TO VARIOUS AGENTS [None]
  - COMPLETED SUICIDE [None]
  - RESPIRATORY ARREST [None]
